FAERS Safety Report 6863011-2 (Version None)
Quarter: 2010Q3

REPORT INFORMATION
  Report Type: 
  Country: None (occurrence: None)
  Receive Date: 20100721
  Receipt Date: 20100406
  Transmission Date: 20110219
  Serious: Yes (Hospitalization, Other)
  Sender: FDA-Public Use
  Company Number: GR-JNJFOC-20100704768

PATIENT
  Sex: Male
  Weight: 83 kg

DRUGS (8)
  1. PEGYLATED DOXORUBICIN [Suspect]
     Indication: MULTIPLE MYELOMA
     Route: 042
  2. PEGYLATED DOXORUBICIN [Suspect]
     Route: 042
  3. PEGYLATED DOXORUBICIN [Suspect]
     Route: 042
  4. VELCADE [Suspect]
     Indication: MULTIPLE MYELOMA
     Route: 042
  5. VELCADE [Suspect]
     Route: 042
  6. VELCADE [Suspect]
     Route: 042
  7. DEXAMETHASONE [Suspect]
     Indication: MULTIPLE MYELOMA
     Route: 042
  8. DEXAMETHASONE [Suspect]
     Route: 042

REACTIONS (1)
  - URINARY RETENTION [None]
